FAERS Safety Report 6370358-5 (Version None)
Quarter: 2009Q3

REPORT INFORMATION
  Report Type: 
  Country: None (occurrence: None)
  Receive Date: 20090923
  Receipt Date: 20090918
  Transmission Date: 20100115
  Serious: Yes (Other)
  Sender: FDA-Public Use
  Company Number: ES-PURDUE-GBR-2009-0005597

PATIENT
  Age: 56 Year
  Sex: Male

DRUGS (1)
  1. SEVREDOL TABLETS [Suspect]
     Indication: OSTEOARTHRITIS
     Dosage: 90 MG, UNK
     Route: 048
     Dates: start: 20090110, end: 20090110

REACTIONS (2)
  - ABNORMAL BEHAVIOUR [None]
  - NERVOUSNESS [None]
